FAERS Safety Report 4413517-0 (Version None)
Quarter: 2004Q3

REPORT INFORMATION
  Report Type: 
  Country: None (occurrence: None)
  Receive Date: 20040802
  Receipt Date: 20030929
  Transmission Date: 20050211
  Serious: Yes (Other)
  Sender: FDA-Public Use
  Company Number: US-MERCK-0310USA00075

PATIENT
  Sex: Female
  Weight: 120 kg

DRUGS (8)
  1. RHINOCORT [Concomitant]
     Route: 055
  2. CELEBREX [Concomitant]
     Indication: ARTHRITIS
     Route: 065
  3. FLEXERIL [Concomitant]
     Indication: MUSCLE CRAMP
     Route: 048
  4. ADVAIR DISKUS 100/50 [Concomitant]
     Route: 055
  5. NIFEDIPINE [Concomitant]
     Indication: HYPERTENSION
     Route: 065
  6. OMEPRAZOLE [Concomitant]
     Route: 065
  7. VIOXX [Suspect]
     Indication: ARTHRITIS
     Route: 048
     Dates: start: 20010101
  8. SPIRONOLACTONE [Concomitant]
     Indication: SWELLING
     Route: 065

REACTIONS (5)
  - BLOOD PRESSURE INCREASED [None]
  - CHEST PAIN [None]
  - DYSPNOEA [None]
  - HAEMATOCHEZIA [None]
  - HAEMORRHAGE [None]
